FAERS Safety Report 23167749 (Version 1)
Quarter: 2023Q4

REPORT INFORMATION
  Report Type: Spontaneous
  Country: CN (occurrence: CN)
  Receive Date: 20231109
  Receipt Date: 20231109
  Transmission Date: 20240110
  Serious: Yes (Hospitalization, Other)
  Sender: FDA-Public Use
  Company Number: CN-009507513-2311CHN001773

PATIENT
  Age: 89 Year
  Sex: Female

DRUGS (3)
  1. NOXAFIL [Suspect]
     Active Substance: POSACONAZOLE
     Indication: Antifungal treatment
     Dosage: 30 MG, QD
     Route: 048
     Dates: start: 20230918, end: 20231014
  2. CEFOPERAZONE SODIUM\SULBACTAM SODIUM [Suspect]
     Active Substance: CEFOPERAZONE SODIUM\SULBACTAM SODIUM
     Indication: Muscular weakness
     Dosage: 3 G, TID
     Route: 041
     Dates: start: 20230930, end: 20231008
  3. SODIUM CHLORIDE [Concomitant]
     Active Substance: SODIUM CHLORIDE
     Indication: Muscular weakness
     Dosage: 100ML, TID
     Route: 041
     Dates: start: 20230930, end: 20231008

REACTIONS (11)
  - Clostridium difficile colitis [Not Recovered/Not Resolved]
  - Haemorrhage subcutaneous [Unknown]
  - Skin erosion [Unknown]
  - Acinetobacter test positive [Unknown]
  - Flushing [Unknown]
  - Ecchymosis [Unknown]
  - Muscular weakness [Unknown]
  - Petechiae [Unknown]
  - Platelet count decreased [Unknown]
  - Anaemia [Unknown]
  - Incorrect dosage administered [Unknown]

NARRATIVE: CASE EVENT DATE: 20230101
